FAERS Safety Report 9845033 (Version 1)
Quarter: 2014Q1

REPORT INFORMATION
  Report Type: Spontaneous
  Country: KR (occurrence: None)
  Receive Date: 20140122
  Receipt Date: 20140122
  Transmission Date: 20141002
  Serious: Yes (Death, Hospitalization)
  Sender: FDA-Public Use
  Company Number: IMP_06939_2014

PATIENT
  Age: 82 Year
  Sex: Female

DRUGS (3)
  1. METFORMIN [Suspect]
     Indication: TYPE 2 DIABETES MELLITUS
  2. CIMETIDINE (CIMETIDINE) (CIMETIDINE) [Suspect]
     Indication: SPINAL COMPRESSION FRACTURE
  3. DEXIBUPROFEN [Concomitant]

REACTIONS (24)
  - Fall [None]
  - Spinal compression fracture [None]
  - Blood pressure decreased [None]
  - Heart rate decreased [None]
  - Body temperature decreased [None]
  - Respiratory rate increased [None]
  - Gastrointestinal sounds abnormal [None]
  - Skin turgor decreased [None]
  - Lactic acidosis [None]
  - Pancreatitis acute [None]
  - Renal failure acute [None]
  - Aspartate aminotransferase increased [None]
  - Blood lactate dehydrogenase increased [None]
  - Blood alkaline phosphatase increased [None]
  - Metabolic acidosis [None]
  - Continuous haemodiafiltration [None]
  - Grunting [None]
  - Pyrexia [None]
  - Cough [None]
  - Depressed level of consciousness [None]
  - Sepsis [None]
  - Pneumonia aspiration [None]
  - Toxicity to various agents [None]
  - Drug clearance decreased [None]
